FAERS Safety Report 21001916 (Version 2)
Quarter: 2022Q3

REPORT INFORMATION
  Report Type: Spontaneous
  Country: US (occurrence: US)
  Receive Date: 20220624
  Receipt Date: 20220802
  Transmission Date: 20221027
  Serious: Yes (Other)
  Sender: FDA-Public Use
  Company Number: US-009507513-2206USA006910

PATIENT
  Age: 81 Year
  Sex: Male
  Weight: 77.11 kg

DRUGS (4)
  1. KEYTRUDA [Suspect]
     Active Substance: PEMBROLIZUMAB
     Indication: Renal cancer
     Dosage: UNK
  2. INLYTA [Suspect]
     Active Substance: AXITINIB
     Indication: Renal cancer
     Dosage: 5 MG BY MOUTH, EVERY 12 HOURS
     Route: 048
     Dates: start: 202005
  3. INLYTA [Suspect]
     Active Substance: AXITINIB
     Dosage: BY MOUTH
     Route: 048
  4. INLYTA [Suspect]
     Active Substance: AXITINIB
     Dosage: EVERY 12 HOURS
     Route: 048

REACTIONS (5)
  - Renal cancer recurrent [Not Recovered/Not Resolved]
  - Ill-defined disorder [Unknown]
  - Illness [Not Recovered/Not Resolved]
  - Testicular swelling [Not Recovered/Not Resolved]
  - Thinking abnormal [Unknown]

NARRATIVE: CASE EVENT DATE: 20200701
